FAERS Safety Report 7967127-9 (Version None)
Quarter: 2011Q4

REPORT INFORMATION
  Report Type: 
  Country: None (occurrence: None)
  Receive Date: 20111205
  Receipt Date: 20111119
  Transmission Date: 20120403
  Serious: Yes (Other)
  Sender: FDA-Public Use
  Company Number: 2011AP002772

PATIENT
  Age: 27 Year
  Sex: Female

DRUGS (4)
  1. RISPERIDONE [Suspect]
     Indication: BIPOLAR I DISORDER
     Dosage: 3 MG; QD; 25 MG; INJECT;QOW 0.25 MG; QD
  2. PALIPERIDONE (PALIPERIDONE) [Concomitant]
  3. LITHIUM CARBONATE [Suspect]
     Indication: BIPOLAR I DISORDER
     Dosage: 1050 MG;QD
  4. QUETIAPINE FUMARATE [Suspect]
     Indication: INSOMNIA
     Dosage: 25 MG; HS

REACTIONS (3)
  - DIABETES INSIPIDUS [None]
  - TREMOR [None]
  - INSOMNIA [None]
